FAERS Safety Report 6439464-0 (Version None)
Quarter: 2009Q4

REPORT INFORMATION
  Report Type: 
  Country: None (occurrence: None)
  Receive Date: 20091113
  Receipt Date: 20091103
  Transmission Date: 20100525
  Serious: No
  Sender: FDA-Public Use
  Company Number: US-JNJFOC-20091101686

PATIENT
  Sex: Female
  Weight: 86.18 kg

DRUGS (3)
  1. DURAGESIC-100 [Suspect]
     Indication: INTERVERTEBRAL DISC DISORDER
     Route: 062
  2. DURAGESIC-100 [Suspect]
     Dosage: NDC NUMBER# 50458-0093-05
     Route: 062
  3. UNKNOWN MEDICATION [Concomitant]
     Indication: HYPERTENSION
     Route: 065

REACTIONS (3)
  - DRUG INEFFECTIVE [None]
  - INCORRECT DRUG ADMINISTRATION DURATION [None]
  - WITHDRAWAL SYNDROME [None]
